FAERS Safety Report 10078825 (Version 3)
Quarter: 2014Q2

REPORT INFORMATION
  Report Type: Report from Study
  Country: US (occurrence: US)
  Receive Date: 20140415
  Receipt Date: 20140516
  Transmission Date: 20141212
  Serious: Yes (Other)
  Sender: FDA-Public Use
  Company Number: US-CELGENEUS-163-10004-14040887

PATIENT
  Age: 63 Year
  Sex: Female
  Weight: 124.4 kg

DRUGS (6)
  1. CC-10004 [Suspect]
     Indication: PSORIATIC ARTHROPATHY
     Route: 048
  2. CC-10004 [Suspect]
     Dosage: 20MG OR 30MG
     Route: 048
     Dates: start: 20140326
  3. CC-10004 [Suspect]
     Dosage: 20MG OR 30MG
     Route: 048
     Dates: start: 20140511
  4. CIPROFLOXACIN [Concomitant]
     Indication: DIVERTICULITIS
     Dosage: 1000 MILLIGRAM
     Route: 048
     Dates: start: 20140218, end: 20140228
  5. METRONIDAZOLE [Concomitant]
     Indication: DIVERTICULITIS
     Dosage: 1500 MILLIGRAM
     Route: 048
     Dates: start: 20140218, end: 20140228
  6. CITALOPRAM [Concomitant]
     Indication: PRODUCT USED FOR UNKNOWN INDICATION
     Route: 065

REACTIONS (1)
  - Keratoacanthoma [Recovered/Resolved]
